FAERS Safety Report 13936179 (Version 3)
Quarter: 2017Q3

REPORT INFORMATION
  Report Type: Report from Study
  Country: US (occurrence: US)
  Receive Date: 20170905
  Receipt Date: 20170927
  Transmission Date: 20171127
  Serious: Yes (Other)
  Sender: FDA-Public Use
  Company Number: US-ASTELLAS-2016US032205

PATIENT
  Age: 76 Year
  Sex: Female
  Weight: 46 kg

DRUGS (11)
  1. ERLOTINIB [Suspect]
     Active Substance: ERLOTINIB
     Route: 048
     Dates: start: 20111212
  2. DEXAMETHASONE SODIUM [Concomitant]
     Indication: EYE PRURITUS
  3. ALIGN [Concomitant]
     Active Substance: BIFIDOBACTERIUM LONGUM SUBSP. INFANTIS
     Indication: PRODUCT USED FOR UNKNOWN INDICATION
     Dosage: UNK, UNKNOWN FREQ.
     Route: 065
  4. NORVASC [Concomitant]
     Active Substance: AMLODIPINE BESYLATE
     Indication: HYPERTENSION
     Route: 065
  5. ATIVAN [Concomitant]
     Active Substance: LORAZEPAM
     Indication: STRESS
     Dosage: 0.5 MG, AS NEEDED
     Route: 065
  6. ERLOTINIB [Suspect]
     Active Substance: ERLOTINIB
     Indication: NON-SMALL CELL LUNG CANCER
     Route: 048
     Dates: start: 20111202
  7. REGLAN [Concomitant]
     Active Substance: METOCLOPRAMIDE HYDROCHLORIDE
     Indication: IMPAIRED GASTRIC EMPTYING
     Dosage: 10 MG, TWICE DAILY (WAS TAKING BEFORE TARCEVA)
     Route: 048
  8. BENICAR [Concomitant]
     Active Substance: OLMESARTAN MEDOXOMIL
     Indication: HYPERTENSION
     Route: 065
  9. CORTISONE [Concomitant]
     Active Substance: CORTISONE\HYDROCORTISONE
     Indication: PAIN
     Dosage: UNK, UNKNOWN FREQ.
     Route: 065
  10. DEXAMETHASONE SODIUM [Concomitant]
     Indication: VISION BLURRED
     Dosage: 1 DROPS, ONCE DAILY (1 DROP IN EACH EYE DAILY)
     Route: 065
  11. LEVOTHYROXINE. [Concomitant]
     Active Substance: LEVOTHYROXINE
     Indication: PRODUCT USED FOR UNKNOWN INDICATION
     Route: 065

REACTIONS (26)
  - Hair texture abnormal [Not Recovered/Not Resolved]
  - Growth of eyelashes [Recovered/Resolved with Sequelae]
  - Blister [Recovered/Resolved with Sequelae]
  - Rash pustular [Unknown]
  - Dry skin [Not Recovered/Not Resolved]
  - Abnormal sensation in eye [Recovered/Resolved with Sequelae]
  - Back injury [Unknown]
  - Pruritus [Recovering/Resolving]
  - Rash [Not Recovered/Not Resolved]
  - Hair growth abnormal [Not Recovered/Not Resolved]
  - Vision blurred [Not Recovered/Not Resolved]
  - Nail disorder [Not Recovered/Not Resolved]
  - Fall [Unknown]
  - Eyelid margin crusting [Not Recovered/Not Resolved]
  - Eye disorder [Recovered/Resolved with Sequelae]
  - Oral mucosal blistering [Not Recovered/Not Resolved]
  - Diarrhoea [Unknown]
  - Rash [Recovered/Resolved]
  - Stomatitis [Not Recovered/Not Resolved]
  - Hip fracture [Unknown]
  - Eyelid rash [Unknown]
  - Eyelid margin crusting [Unknown]
  - Eye pruritus [Not Recovered/Not Resolved]
  - Hair texture abnormal [Not Recovered/Not Resolved]
  - Eye irritation [Unknown]
  - Pain [Unknown]

NARRATIVE: CASE EVENT DATE: 201203
